FAERS Safety Report 21040504 (Version 1)
Quarter: 2022Q3

REPORT INFORMATION
  Report Type: Spontaneous
  Country: US (occurrence: US)
  Receive Date: 20220704
  Receipt Date: 20220704
  Transmission Date: 20221026
  Serious: No
  Sender: FDA-Public Use
  Company Number: US-SA-SAC20220701001508

PATIENT
  Sex: Female

DRUGS (1)
  1. AUBAGIO [Suspect]
     Active Substance: TERIFLUNOMIDE
     Indication: Multiple sclerosis
     Dosage: 7 MG, QD
     Route: 048
     Dates: start: 2019

REACTIONS (5)
  - Irritable bowel syndrome [Unknown]
  - Diarrhoea [Unknown]
  - Pruritus [Unknown]
  - Rash [Recovered/Resolved]
  - Pain in extremity [Unknown]
